FAERS Safety Report 5354118-X (Version None)
Quarter: 2007Q2

REPORT INFORMATION
  Report Type: 
  Country: None (occurrence: None)
  Receive Date: 20070612
  Receipt Date: 20070531
  Transmission Date: 20071010
  Serious: No
  Sender: FDA-Public Use
  Company Number: US-ASTRAZENECA-2006UW07696

PATIENT
  Age: 370 Month
  Sex: Female
  Weight: 70.5 kg

DRUGS (1)
  1. SEROQUEL [Suspect]
     Indication: BIPOLAR DISORDER
     Route: 048
     Dates: start: 20051001, end: 20060501

REACTIONS (2)
  - DIABETES MELLITUS [None]
  - GLYCOSURIA [None]
